FAERS Safety Report 4900079-4 (Version None)
Quarter: 2006Q1

REPORT INFORMATION
  Report Type: 
  Country: None (occurrence: None)
  Receive Date: 20060121
  Receipt Date: 20060118
  Transmission Date: 20060701
  Serious: Yes (Disabling, Other)
  Sender: FDA-Public Use
  Company Number: 2006009071

PATIENT
  Age: 90 Year
  Sex: Female
  Weight: 54.8852 kg

DRUGS (6)
  1. CELEBREX [Suspect]
     Indication: RHEUMATOID ARTHRITIS
  2. BEXTRA [Suspect]
     Indication: RHEUMATOID ARTHRITIS
     Dosage: 10-20 MG (20 MG, AS NECESSARY), ORAL
     Route: 048
  3. PREDNISONE [Concomitant]
  4. METHOTREXATE [Concomitant]
  5. ARAVA [Concomitant]
  6. LACTULOSE [Concomitant]

REACTIONS (8)
  - BLINDNESS [None]
  - COLOSTOMY [None]
  - CONDITION AGGRAVATED [None]
  - DEPRESSION [None]
  - DRUG INEFFECTIVE [None]
  - MACULAR DEGENERATION [None]
  - PAIN [None]
  - UTERINE CANCER [None]
